FAERS Safety Report 5409735-5 (Version None)
Quarter: 2007Q3

REPORT INFORMATION
  Report Type: 
  Country: None (occurrence: None)
  Receive Date: 20070809
  Receipt Date: 20070801
  Transmission Date: 20080115
  Serious: Yes (Hospitalization)
  Sender: FDA-Public Use
  Company Number: B0479545A

PATIENT
  Age: 44 Year
  Sex: Female

DRUGS (2)
  1. LAPATINIB [Suspect]
     Dosage: 1250MG PER DAY
     Route: 048
     Dates: start: 20070706
  2. CAPECITABINE [Suspect]
     Dosage: 1800MG PER DAY
     Route: 048
     Dates: start: 20070706

REACTIONS (2)
  - CHEST PAIN [None]
  - DYSPNOEA [None]
